FAERS Safety Report 25936613 (Version 1)
Quarter: 2025Q4

REPORT INFORMATION
  Report Type: Spontaneous
  Country: CN (occurrence: CN)
  Receive Date: 20251017
  Receipt Date: 20251017
  Transmission Date: 20260118
  Serious: Yes (Other)
  Sender: BRACCO
  Company Number: CN-BRACCO-2025CN07105

PATIENT
  Age: 71 Year
  Sex: Female

DRUGS (3)
  1. SULPHUR HEXAFLUORIDE [Suspect]
     Active Substance: SULFUR HEXAFLUORIDE
     Indication: Imaging procedure
     Dosage: 24 MG, SINGLE
     Route: 040
     Dates: start: 20250916, end: 20250916
  2. SULPHUR HEXAFLUORIDE [Suspect]
     Active Substance: SULFUR HEXAFLUORIDE
     Indication: Imaging procedure
     Dosage: 24 MG, SINGLE
     Route: 040
     Dates: start: 20250916, end: 20250916
  3. SULPHUR HEXAFLUORIDE [Suspect]
     Active Substance: SULFUR HEXAFLUORIDE
     Indication: Imaging procedure
     Dosage: 24 MG, SINGLE
     Route: 040
     Dates: start: 20250916, end: 20250916

REACTIONS (4)
  - Hypoaesthesia [Recovering/Resolving]
  - Palpitations [Recovering/Resolving]
  - Vomiting [Recovering/Resolving]
  - Hyperhidrosis [Recovering/Resolving]

NARRATIVE: CASE EVENT DATE: 20250916
